FAERS Safety Report 6495059-4 (Version None)
Quarter: 2009Q4

REPORT INFORMATION
  Report Type: 
  Country: None (occurrence: None)
  Receive Date: 20091214
  Receipt Date: 20090427
  Transmission Date: 20100525
  Serious: Yes (Other)
  Sender: FDA-Public Use
  Company Number: US-BRISTOL-MYERS SQUIBB COMPANY-14602049

PATIENT

DRUGS (2)
  1. ABILIFY [Suspect]
  2. LEXAPRO [Suspect]

REACTIONS (1)
  - PANCREATITIS [None]
